FAERS Safety Report 8509624-3 (Version None)
Quarter: 2012Q3

REPORT INFORMATION
  Report Type: 
  Country: None (occurrence: None)
  Receive Date: 20120713
  Receipt Date: 20120702
  Transmission Date: 20120928
  Serious: Yes (Other)
  Sender: FDA-Public Use
  Company Number: US-JNJFOC-20120705146

PATIENT
  Sex: Female
  Weight: 52.16 kg

DRUGS (6)
  1. NUCYNTA [Suspect]
     Indication: BACK PAIN
     Dosage: 3 TIMES PER DAY
     Route: 048
     Dates: end: 20120101
  2. NUCYNTA [Suspect]
     Dosage: ONCE A DAY
     Route: 048
     Dates: start: 20120627
  3. NUCYNTA [Suspect]
     Dosage: 50MG OR 75MG
     Route: 048
  4. NUCYNTA [Suspect]
     Dosage: ONCE A DAY
     Route: 048
     Dates: start: 20120101, end: 20120627
  5. OXYCODONE HCL AND ACETAMINOPHEN [Suspect]
     Indication: BACK PAIN
     Dosage: 10MG/325MG
     Route: 065
     Dates: start: 20120101
  6. NUCYNTA [Suspect]
     Dosage: ONCE DAILY
     Route: 048
     Dates: start: 20120101, end: 20120101

REACTIONS (6)
  - WITHDRAWAL SYNDROME [None]
  - FATIGUE [None]
  - THYROID NEOPLASM [None]
  - DRUG INEFFECTIVE [None]
  - FEELING ABNORMAL [None]
  - AUTOIMMUNE THYROIDITIS [None]
